FAERS Safety Report 23946908 (Version 1)
Quarter: 2024Q2

REPORT INFORMATION
  Report Type: Spontaneous
  Country: RU (occurrence: None)
  Receive Date: 20240606
  Receipt Date: 20240606
  Transmission Date: 20240716
  Serious: Yes (Other)
  Sender: FDA-Public Use
  Company Number: RU-ROCHE-3572743

PATIENT
  Age: 71 Year
  Sex: Female

DRUGS (3)
  1. TECENTRIQ [Suspect]
     Active Substance: ATEZOLIZUMAB
     Indication: Hepatocellular carcinoma
     Dosage: DAY 1 OF THE 21-DAY
     Route: 065
     Dates: start: 20230119
  2. AVASTIN [Suspect]
     Active Substance: BEVACIZUMAB
     Indication: Hepatocellular carcinoma
     Dosage: DAY 1 OF THE 21-DAY CYCLE??SUBSEQUENT DOSE ON 29/JUN/2023
     Route: 065
     Dates: start: 20230119
  3. LENVATINIB [Concomitant]
     Active Substance: LENVATINIB
     Dosage: 8-12MG DAILY ORALLY
     Route: 048

REACTIONS (5)
  - Leukopenia [Unknown]
  - Thrombocytopenia [Unknown]
  - Hypertensive crisis [Unknown]
  - Transaminases increased [Unknown]
  - Chest pain [Unknown]
